FAERS Safety Report 8102105 (Version 3)
Quarter: 2014Q1

REPORT INFORMATION
  Report Type: Spontaneous
  Country: US (occurrence: US)
  Receive Date: 20110823
  Receipt Date: 20140326
  Transmission Date: 20141002
  Serious: Yes (Other)
  Sender: FDA-Public Use
  Company Number: US-ASTRAZENECA-2011SE48115

PATIENT
  Age: 55 Year
  Sex: Female
  Weight: 70.8 kg

DRUGS (18)
  1. NEXIUM [Suspect]
     Route: 048
  2. ATENOLOL [Suspect]
     Route: 065
  3. SYMBICORT PMDI [Suspect]
     Indication: ASTHMA
     Dosage: UNKNOWN
     Route: 055
     Dates: end: 2010
  4. VENTOLIN [Suspect]
     Indication: DYSPNOEA
     Dosage: 2 SPRAYS, SIX TIMES PER DAY, AS REQUIRED
     Route: 055
     Dates: start: 2008, end: 2010
  5. VENTOLIN [Suspect]
     Indication: RESPIRATORY DISORDER
     Dosage: 2 SPRAYS, SIX TIMES PER DAY, AS REQUIRED
     Route: 055
     Dates: start: 2008, end: 2010
  6. VENTOLIN [Suspect]
     Indication: DYSPNOEA
     Dosage: 2 SPRAYS, EVERY 4 HOURS
     Route: 055
  7. VENTOLIN [Suspect]
     Indication: RESPIRATORY DISORDER
     Dosage: 2 SPRAYS, EVERY 4 HOURS
     Route: 055
  8. LAMICTAL [Suspect]
     Indication: BIPOLAR DISORDER
     Route: 048
     Dates: start: 2006
  9. LAMICTAL [Suspect]
     Indication: BIPOLAR DISORDER
     Route: 048
     Dates: start: 2008, end: 2010
  10. ADVAIR DISKUS [Suspect]
     Indication: ASTHMA
     Dosage: 250/50 MCG, 1 PUFF TWICE PER DAY
     Route: 055
     Dates: start: 2010
  11. ADVAIR DISKUS [Suspect]
     Indication: RESPIRATORY DISORDER
     Dosage: 250/50 MCG, 1 PUFF TWICE PER DAY
     Route: 055
     Dates: start: 2010
  12. PRAVASTATIN [Suspect]
     Route: 065
  13. RISPERDAL [Concomitant]
  14. OXYCODONE [Concomitant]
  15. NAPROSYN [Concomitant]
  16. ZOLOFT [Concomitant]
  17. KLONOPIN [Concomitant]
  18. NORVASC [Concomitant]

REACTIONS (14)
  - Haematemesis [Unknown]
  - Pneumonia [Not Recovered/Not Resolved]
  - Gastrooesophageal reflux disease [Unknown]
  - Sleep disorder due to a general medical condition [Unknown]
  - Dyspnoea [Unknown]
  - Bronchitis [Unknown]
  - Asthma [Unknown]
  - Pain [Unknown]
  - Anaemia [Unknown]
  - Hypochondriasis [Unknown]
  - Influenza like illness [Unknown]
  - Chest pain [Recovered/Resolved]
  - Psychogenic pain disorder [Unknown]
  - Drug dose omission [Unknown]
